FAERS Safety Report 12068451 (Version 1)
Quarter: 2016Q1

REPORT INFORMATION
  Report Type: Spontaneous
  Country: US (occurrence: US)
  Receive Date: 20160211
  Receipt Date: 20160211
  Transmission Date: 20160526
  Serious: No
  Sender: FDA-Public Use
  Company Number: US-SMITH AND NEPHEW, INC-2015SMT00365

PATIENT
  Age: 50 Year
  Sex: Male
  Weight: 81.63 kg

DRUGS (1)
  1. REGRANEX [Suspect]
     Active Substance: BECAPLERMIN
     Indication: WOUND
     Dosage: UNK UNK, 1X/DAY
     Route: 061
     Dates: start: 20150916

REACTIONS (5)
  - Burning sensation [Recovering/Resolving]
  - Rash [Recovering/Resolving]
  - Incorrect drug administration duration [Unknown]
  - Off label use [Unknown]
  - Hypersensitivity [Recovering/Resolving]

NARRATIVE: CASE EVENT DATE: 20150916
